FAERS Safety Report 5542949-2 (Version None)
Quarter: 2007Q4

REPORT INFORMATION
  Report Type: 
  Country: None (occurrence: None)
  Receive Date: 20071210
  Receipt Date: 20071129
  Transmission Date: 20080405
  Serious: Yes (Hospitalization, Other)
  Sender: FDA-Public Use
  Company Number: US-PFIZER INC-2007099870

PATIENT
  Sex: Male
  Weight: 76.7 kg

DRUGS (4)
  1. PREDNISONE [Suspect]
     Indication: PROSTATE CANCER METASTATIC
     Route: 048
  2. CP-751,871 [Suspect]
     Indication: PROSTATE CANCER METASTATIC
     Route: 042
  3. DOCETAXEL [Suspect]
     Indication: PROSTATE CANCER METASTATIC
     Route: 042
     Dates: start: 20070109, end: 20070828
  4. DOCETAXEL [Suspect]
     Route: 042
     Dates: start: 20070828, end: 20070917

REACTIONS (2)
  - EPISTAXIS [None]
  - HYPONATRAEMIA [None]
